FAERS Safety Report 8215070-2 (Version None)
Quarter: 2012Q1

REPORT INFORMATION
  Report Type: 
  Country: None (occurrence: None)
  Receive Date: 20120316
  Receipt Date: 20120302
  Transmission Date: 20120608
  Serious: Yes (Other)
  Sender: FDA-Public Use
  Company Number: AU-MYLANLABS-2012S1005017

PATIENT
  Age: 26 Year
  Sex: Female

DRUGS (5)
  1. FLUOXETINE [Suspect]
     Indication: STRESS
     Route: 065
  2. VENLAFAXINE [Suspect]
     Dosage: INCREASED TO 300 MG/DAY OVER 3 MONTHS
     Route: 065
  3. CITALOPRAM HYDROBROMIDE [Suspect]
     Indication: STRESS
     Route: 065
  4. PAROXETINE HCL [Suspect]
     Indication: STRESS
     Dosage: 20 MG/DAY
     Route: 065
  5. VENLAFAXINE [Suspect]
     Indication: STRESS
     Dosage: 37.5 MG/DAY
     Route: 065

REACTIONS (3)
  - AKATHISIA [None]
  - AKINESIA [None]
  - SUICIDE ATTEMPT [None]
